FAERS Safety Report 22047070 (Version 2)
Quarter: 2023Q1

REPORT INFORMATION
  Report Type: Spontaneous
  Country: JP (occurrence: JP)
  Receive Date: 20230301
  Receipt Date: 20230331
  Transmission Date: 20230417
  Serious: Yes (Hospitalization)
  Sender: FDA-Public Use
  Company Number: JP-NBI-BS202300030

PATIENT
  Age: 65 Year
  Sex: Male

DRUGS (2)
  1. JARDIANCE [Suspect]
     Active Substance: EMPAGLIFLOZIN
     Indication: Diabetes mellitus
     Route: 048
  2. SEMAGLUTIDE(GENETICAL RECOMBINATION) [Concomitant]
     Indication: Diabetes mellitus
     Route: 048

REACTIONS (2)
  - Urinary tract infection [Unknown]
  - Ureterolithiasis [Unknown]
